FAERS Safety Report 18716375 (Version 1)
Quarter: 2021Q1

REPORT INFORMATION
  Report Type: Spontaneous
  Country: DE (occurrence: DE)
  Receive Date: 20210108
  Receipt Date: 20210108
  Transmission Date: 20210419
  Serious: Yes (Hospitalization, Other)
  Sender: FDA-Public Use
  Company Number: DE-JNJFOC-20210106738

PATIENT
  Age: 1 Day
  Sex: Male
  Weight: 2.73 kg

DRUGS (1)
  1. TRAMADOL HYDROCHLORIDE. [Suspect]
     Active Substance: TRAMADOL HYDROCHLORIDE
     Indication: PRODUCT USED FOR UNKNOWN INDICATION
     Dosage: 250 MILLIGRAM, 1/DAY
     Route: 064
     Dates: start: 20200309, end: 20201126

REACTIONS (7)
  - Respiratory disorder neonatal [Recovered/Resolved]
  - Neonatal respiratory distress syndrome [Recovered/Resolved]
  - Pneumothorax [Recovered/Resolved]
  - Foetal exposure during pregnancy [Unknown]
  - Temperature regulation disorder [Recovered/Resolved]
  - Bradycardia neonatal [Recovered/Resolved]
  - Microcephaly [Unknown]

NARRATIVE: CASE EVENT DATE: 20201126
